FAERS Safety Report 11290704 (Version 1)
Quarter: 2015Q3

REPORT INFORMATION
  Report Type: Spontaneous
  Country: IT (occurrence: None)
  Receive Date: 20150720
  Receipt Date: 20150720
  Transmission Date: 20151125
  Serious: Yes (Hospitalization)
  Sender: FDA-Public Use
  Company Number: NL01PV15_39307

PATIENT
  Age: 34 Year
  Sex: Male

DRUGS (1)
  1. ZOLPIDEM [Suspect]
     Active Substance: ZOLPIDEM\ZOLPIDEM TARTRATE
     Indication: PRODUCT USED FOR UNKNOWN INDICATION
     Dosage: TOTAL
     Route: 048
     Dates: start: 20150126, end: 20150126

REACTIONS (3)
  - Somnolence [None]
  - Medication error [None]
  - Hypokalaemia [None]

NARRATIVE: CASE EVENT DATE: 20150126
